FAERS Safety Report 18418176 (Version 1)
Quarter: 2020Q4

REPORT INFORMATION
  Report Type: Spontaneous
  Country: US (occurrence: US)
  Receive Date: 20201023
  Receipt Date: 20201023
  Transmission Date: 20210114
  Serious: Yes (Other)
  Sender: FDA-Public Use
  Company Number: US-ROCHE-2698332

PATIENT
  Age: 64 Year
  Sex: Male

DRUGS (5)
  1. TECENTRIQ [Suspect]
     Active Substance: ATEZOLIZUMAB
     Dosage: ONGOING: NO; MAINTENANCE DOSE
     Route: 042
     Dates: end: 20200824
  2. ETOPOSIDE. [Concomitant]
     Active Substance: ETOPOSIDE
     Dates: start: 202003
  3. TECENTRIQ [Suspect]
     Active Substance: ATEZOLIZUMAB
     Indication: SMALL CELL LUNG CANCER
     Dosage: ONGOING: NO; FOR 6 CYCLES, 18 WEEKS TOTAL
     Route: 042
     Dates: end: 202003
  4. CARBOPLATIN. [Concomitant]
     Active Substance: CARBOPLATIN
  5. RITUXAN [Suspect]
     Active Substance: RITUXIMAB
     Indication: AUTOIMMUNE HAEMOLYTIC ANAEMIA
     Dosage: THERAPY DETAILS: UNKNOWN
     Route: 041

REACTIONS (3)
  - Autoimmune haemolytic anaemia [Recovering/Resolving]
  - Intentional product use issue [Unknown]
  - Off label use [Unknown]
